FAERS Safety Report 16462847 (Version 18)
Quarter: 2020Q2

REPORT INFORMATION
  Report Type: Spontaneous
  Country: CA (occurrence: CA)
  Receive Date: 20190621
  Receipt Date: 20200627
  Transmission Date: 20200713
  Serious: Yes (Hospitalization, Other)
  Sender: FDA-Public Use
  Company Number: CA-CELLTRION INC.-2019CA021294

PATIENT

DRUGS (28)
  1. INFLECTRA [Suspect]
     Active Substance: INFLIXIMAB-DYYB
     Dosage: 10 MG/KG, AT 0, 2, 6, THEN EVERY 4 WEEKS (RE-INDUCTION)
     Route: 042
     Dates: start: 20191205, end: 20191205
  2. INFLECTRA [Suspect]
     Active Substance: INFLIXIMAB-DYYB
     Indication: CROHN^S DISEASE
     Dosage: UNK, AT 0, 2 WEEKS
     Route: 042
     Dates: start: 20190405, end: 20190405
  3. INFLECTRA [Suspect]
     Active Substance: INFLIXIMAB-DYYB
     Dosage: 10 MG/KG, AT 0, 2, 6, THEN EVERY 4 WEEKS (RE-INDUCTION)
     Route: 042
     Dates: start: 20191120, end: 20191120
  4. INFLECTRA [Suspect]
     Active Substance: INFLIXIMAB-DYYB
     Dosage: 10 MG/KG, AT 0, 2, 6, THEN EVERY 4 WEEKS (RE-INDUCTION)
     Route: 042
     Dates: start: 20200522
  5. INFLECTRA [Suspect]
     Active Substance: INFLIXIMAB-DYYB
     Dosage: 10 MG/KG, AT 0, 2, 6, THEN EVERY 4 WEEKS (RE-INDUCTION)
     Route: 042
     Dates: start: 20200619
  6. VITAMIN D [Concomitant]
     Active Substance: VITAMIN D NOS
     Dosage: 1200 MG, ONCE DAILY
     Route: 048
  7. INFLECTRA [Suspect]
     Active Substance: INFLIXIMAB-DYYB
     Dosage: 10 MG/KG, EVERY 4 WEEKS
     Route: 042
     Dates: start: 20190802, end: 20190802
  8. INFLECTRA [Suspect]
     Active Substance: INFLIXIMAB-DYYB
     Dosage: 10 MG/KG, AT 0, 2, 6, THEN EVERY 4 WEEKS (RE-INDUCTION)
     Route: 042
     Dates: start: 20200128, end: 20200128
  9. CELECOXIB. [Concomitant]
     Active Substance: CELECOXIB
     Dosage: 100 MG, TWICE DAILY (DURING 7 DAYS)
     Route: 048
  10. INFLECTRA [Suspect]
     Active Substance: INFLIXIMAB-DYYB
     Dosage: 10 MG/KG, EVERY 4 WEEKS
     Route: 042
     Dates: start: 20190926, end: 20190926
  11. INFLECTRA [Suspect]
     Active Substance: INFLIXIMAB-DYYB
     Dosage: 10 MG/KG, AT 0, 2, 6, THEN EVERY 4 WEEKS (RE-INDUCTION)
     Route: 042
     Dates: start: 20200327
  12. PENTASA [Concomitant]
     Active Substance: MESALAMINE
     Dosage: UNK, ONCE DAILY (AT BEDTIME)
     Route: 054
  13. JAMP-CALCIUM + VITAMIN D [Concomitant]
     Dosage: 500 MG, ONCE DAILY
     Route: 048
  14. APO-AMITRIPTYLINE [Concomitant]
     Active Substance: AMITRIPTYLINE HYDROCHLORIDE
     Dosage: 2 DF, ONCE DAILY (BEFORE SLEEP)
     Route: 065
  15. INFLECTRA [Suspect]
     Active Substance: INFLIXIMAB-DYYB
     Dosage: 10 MG/KG, EVERY 4 WEEKS THEN EVERY 8 WEEKS
     Route: 042
     Dates: start: 20190503, end: 20190503
  16. INFLECTRA [Suspect]
     Active Substance: INFLIXIMAB-DYYB
     Dosage: 10 MG/KG, RESCUE DOSE
     Route: 042
     Dates: start: 20190607, end: 20190607
  17. INFLECTRA [Suspect]
     Active Substance: INFLIXIMAB-DYYB
     Dosage: 10 MG/KG, EVERY 4 WEEKS
     Route: 042
     Dates: start: 20190705, end: 20190705
  18. INFLECTRA [Suspect]
     Active Substance: INFLIXIMAB-DYYB
     Dosage: 10 MG/KG, EVERY 4 WEEKS
     Route: 042
     Dates: start: 20191029, end: 20191029
  19. MEZAVANT [Concomitant]
     Active Substance: MESALAMINE
     Dosage: 4 DF, ONCE DAILY
     Route: 065
  20. FORTEO [Concomitant]
     Active Substance: TERIPARATIDE
     Indication: OSTEOPOROSIS
     Dosage: UNK, DAILY
     Route: 058
     Dates: start: 201908
  21. INFLECTRA [Suspect]
     Active Substance: INFLIXIMAB-DYYB
     Dosage: UNK, AT 0, 2 WEEKS
     Route: 042
     Dates: start: 20190417, end: 20190417
  22. PREDNISONE. [Concomitant]
     Active Substance: PREDNISONE
     Dosage: UNK, ONCE DAILY
     Route: 048
     Dates: start: 201811, end: 2019
  23. PREGABALIN TEVA [Concomitant]
     Active Substance: PREGABALIN
     Dosage: 25 MG, TWICE DAILY
     Route: 048
  24. INFLECTRA [Suspect]
     Active Substance: INFLIXIMAB-DYYB
     Dosage: 10 MG/KG, EVERY 4 WEEKS
     Route: 042
     Dates: start: 20190829, end: 20190829
  25. INFLECTRA [Suspect]
     Active Substance: INFLIXIMAB-DYYB
     Dosage: 10 MG/KG, AT 0, 2, 6, THEN EVERY 4 WEEKS (RE-INDUCTION)
     Route: 042
     Dates: start: 20200102, end: 20200102
  26. INFLECTRA [Suspect]
     Active Substance: INFLIXIMAB-DYYB
     Dosage: 10 MG/KG, AT 0, 2, 6, THEN EVERY 4 WEEKS (RE-INDUCTION)
     Route: 042
     Dates: start: 20200228
  27. LOPERAMIDE TEVA [Concomitant]
     Active Substance: LOPERAMIDE
     Dosage: UNK, AS NEEDED (FOUR TIMES DAILY; MAXIMUM 8 TABLETS A DAY)
     Route: 065
  28. PROLIA [Concomitant]
     Active Substance: DENOSUMAB
     Dosage: UNK
     Route: 058

REACTIONS (27)
  - Dehydration [Unknown]
  - Condition aggravated [Unknown]
  - Blood pressure fluctuation [Unknown]
  - Haematochezia [Not Recovered/Not Resolved]
  - Heart rate increased [Unknown]
  - Chills [Unknown]
  - Feeling cold [Unknown]
  - Intentional product use issue [Unknown]
  - Clostridium difficile infection [Recovered/Resolved]
  - Cough [Unknown]
  - Respiratory tract congestion [Unknown]
  - Haemorrhoids [Unknown]
  - Hypoaesthesia [Unknown]
  - Off label use [Unknown]
  - Rhinorrhoea [Unknown]
  - Malaise [Not Recovered/Not Resolved]
  - Nasal congestion [Unknown]
  - Condition aggravated [Unknown]
  - Fatigue [Unknown]
  - Insomnia [Unknown]
  - Weight increased [Unknown]
  - Off label use [Unknown]
  - Pyrexia [Recovered/Resolved]
  - Headache [Not Recovered/Not Resolved]
  - Osteoporosis [Unknown]
  - Drug level below therapeutic [Unknown]
  - Heart rate irregular [Unknown]

NARRATIVE: CASE EVENT DATE: 201905
